FAERS Safety Report 10872910 (Version 1)
Quarter: 2015Q1

REPORT INFORMATION
  Report Type: Spontaneous
  Country: GB (occurrence: GB)
  Receive Date: 20150227
  Receipt Date: 20150227
  Transmission Date: 20150721
  Serious: Yes (Disabling)
  Sender: FDA-Public Use
  Company Number: GB-ROCHE-1534504

PATIENT
  Age: 70 Year
  Sex: Male

DRUGS (1)
  1. ZELBORAF [Suspect]
     Active Substance: VEMURAFENIB
     Indication: METASTATIC MALIGNANT MELANOMA
     Route: 048
     Dates: start: 201203

REACTIONS (4)
  - Gingival hypertrophy [Not Recovered/Not Resolved]
  - Ulcer [Not Recovered/Not Resolved]
  - Oral disorder [Unknown]
  - Oral mucosal erythema [Not Recovered/Not Resolved]

NARRATIVE: CASE EVENT DATE: 201407
